FAERS Safety Report 8401430-3 (Version None)
Quarter: 2012Q2

REPORT INFORMATION
  Report Type: 
  Country: None (occurrence: None)
  Receive Date: 20120601
  Receipt Date: 20120523
  Transmission Date: 20120825
  Serious: Yes (Other)
  Sender: FDA-Public Use
  Company Number: CA-JNJFOC-20120511688

PATIENT
  Sex: Female
  Weight: 84 kg

DRUGS (6)
  1. METHOTREXATE [Concomitant]
     Route: 065
  2. HYDROCHLOROTHIAZIDE [Concomitant]
     Route: 065
  3. REMICADE [Suspect]
     Indication: CROHN'S DISEASE
     Route: 042
     Dates: start: 20111118
  4. ADALAT [Concomitant]
     Route: 065
  5. DEMEROL [Concomitant]
     Route: 065
  6. FOLIC ACID [Concomitant]
     Route: 065

REACTIONS (3)
  - DISCOMFORT [None]
  - CARPAL TUNNEL SYNDROME [None]
  - LOWER RESPIRATORY TRACT INFECTION [None]
